FAERS Safety Report 6314216-0 (Version None)
Quarter: 2009Q3

REPORT INFORMATION
  Report Type: 
  Country: None (occurrence: None)
  Receive Date: 20090817
  Receipt Date: 20090803
  Transmission Date: 20100115
  Serious: Yes (Death, Hospitalization)
  Sender: FDA-Public Use
  Company Number: 2008AL010343

PATIENT
  Age: 63 Year
  Sex: Male
  Weight: 95.2554 kg

DRUGS (21)
  1. DIGOXIN [Suspect]
     Indication: ATRIAL FIBRILLATION
     Dosage: 0.125MG, DAILY, PO
     Route: 048
     Dates: start: 19920101
  2. DIGOXIN [Suspect]
     Indication: HEART RATE IRREGULAR
     Dosage: 0.125MG, DAILY, PO
     Route: 048
     Dates: start: 19920101
  3. ADVAIR HFA [Concomitant]
  4. ALBUTEROL [Concomitant]
  5. POTASSIUM CL [Concomitant]
  6. WARFARIN [Concomitant]
  7. TERAZOSIN HCL [Concomitant]
  8. ACIPHEX [Concomitant]
  9. ASPIRIN [Concomitant]
  10. LASIX [Concomitant]
  11. COREG [Concomitant]
  12. DILTIAZEM [Concomitant]
  13. NIFEDIPINE [Concomitant]
  14. ZYRTEC [Concomitant]
  15. CARTIA XT [Concomitant]
  16. LEVAQUIN [Concomitant]
  17. FUROSEMIDE [Concomitant]
  18. SINGULAIR [Concomitant]
  19. ASMANEX TWISTHALER [Concomitant]
  20. PREDNISONE TAB [Concomitant]
  21. DOXYCYCLINE [Concomitant]

REACTIONS (47)
  - ACTIVITIES OF DAILY LIVING IMPAIRED [None]
  - ANOXIC ENCEPHALOPATHY [None]
  - AORTIC DILATATION [None]
  - AORTIC VALVE INCOMPETENCE [None]
  - ARRHYTHMIA [None]
  - ASTHENIA [None]
  - ASTHMA [None]
  - ATELECTASIS [None]
  - ATRIAL FIBRILLATION [None]
  - BLOOD BILIRUBIN INCREASED [None]
  - BLOOD PRESSURE FLUCTUATION [None]
  - CARDIAC DISORDER [None]
  - CARDIAC FAILURE CONGESTIVE [None]
  - CARDIAC MURMUR [None]
  - CARDIOMEGALY [None]
  - CARDIOMYOPATHY [None]
  - CHEST DISCOMFORT [None]
  - DIZZINESS [None]
  - DYSPNOEA [None]
  - DYSPNOEA EXERTIONAL [None]
  - ECHOCARDIOGRAM ABNORMAL [None]
  - ELECTROCARDIOGRAM Q WAVES [None]
  - GENERAL PHYSICAL HEALTH DETERIORATION [None]
  - HEART RATE INCREASED [None]
  - HEART RATE IRREGULAR [None]
  - HYPERTENSION [None]
  - HYPOKALAEMIA [None]
  - INJURY [None]
  - LEFT VENTRICULAR HYPERTROPHY [None]
  - MITRAL VALVE INCOMPETENCE [None]
  - MUSCLE SPASMS [None]
  - MYOCARDIAL ISCHAEMIA [None]
  - NAUSEA [None]
  - NOCTURNAL DYSPNOEA [None]
  - OEDEMA PERIPHERAL [None]
  - ORTHOPNOEA [None]
  - PALPITATIONS [None]
  - PULMONARY CONGESTION [None]
  - PULMONARY OEDEMA [None]
  - PULMONARY VALVE INCOMPETENCE [None]
  - RASH [None]
  - RENAL FAILURE ACUTE [None]
  - TRICUSPID VALVE INCOMPETENCE [None]
  - VENTRICULAR EXTRASYSTOLES [None]
  - VENTRICULAR FIBRILLATION [None]
  - VOMITING [None]
  - WHEEZING [None]
